FAERS Safety Report 6128875-9 (Version None)
Quarter: 2009Q1

REPORT INFORMATION
  Report Type: 
  Country: None (occurrence: None)
  Receive Date: 20090320
  Receipt Date: 20090305
  Transmission Date: 20090719
  Serious: Yes (Hospitalization)
  Sender: FDA-Public Use
  Company Number: 2009S1003994

PATIENT
  Age: 51 Year
  Sex: Male
  Weight: 68.0396 kg

DRUGS (4)
  1. METHOTREXATE [Suspect]
     Indication: RHEUMATOID ARTHRITIS
     Dosage: 7.5 MG;WEEKLY;ORAL
     Route: 048
     Dates: start: 19890101, end: 20090201
  2. IRON [Concomitant]
  3. COREG [Concomitant]
  4. SYNTHROID [Concomitant]

REACTIONS (8)
  - BLISTER [None]
  - HYPOTENSION [None]
  - IMMUNOSUPPRESSION [None]
  - LEUKOPENIA [None]
  - PLATELET COUNT DECREASED [None]
  - PYREXIA [None]
  - RENAL FAILURE [None]
  - THERAPEUTIC AGENT TOXICITY [None]
